FAERS Safety Report 6342615-X (Version None)
Quarter: 2009Q3

REPORT INFORMATION
  Report Type: 
  Country: None (occurrence: None)
  Receive Date: 20090908
  Receipt Date: 20061205
  Transmission Date: 20100115
  Serious: Yes (Congenital Anomaly)
  Sender: FDA-Public Use
  Company Number: JP-ROCHE-439635

PATIENT
  Sex: Male
  Weight: 3 kg

DRUGS (1)
  1. OSELTAMIVIR [Suspect]
     Indication: INFLUENZA
     Dates: start: 20060131, end: 20060204

REACTIONS (1)
  - MELANOCYTIC NAEVUS [None]
